FAERS Safety Report 16924213 (Version 1)
Quarter: 2019Q4

REPORT INFORMATION
  Report Type: Spontaneous
  Country: US (occurrence: US)
  Receive Date: 20190823
  Receipt Date: 20190823
  Transmission Date: 20200122
  Serious: No
  Sender: FDA-Public Use
  Company Number: None

PATIENT
  Age: 60 Year
  Sex: Female

DRUGS (1)
  1. PROLIA [Suspect]
     Active Substance: DENOSUMAB
     Indication: SENILE OSTEOPOROSIS
     Dosage: ?          OTHER FREQUENCY:EVERY 6 MONTHS;?
     Route: 058
     Dates: start: 20190110

REACTIONS (6)
  - Musculoskeletal pain [None]
  - Arthralgia [None]
  - Bone pain [None]
  - Myalgia [None]
  - Back pain [None]
  - Osteoarthritis [None]

NARRATIVE: CASE EVENT DATE: 20190801
